FAERS Safety Report 22270844 (Version 1)
Quarter: 2023Q2

REPORT INFORMATION
  Report Type: Spontaneous
  Country: DE (occurrence: DE)
  Receive Date: 20230501
  Receipt Date: 20230501
  Transmission Date: 20230721
  Serious: Yes (Hospitalization, Other)
  Sender: FDA-Public Use
  Company Number: DE-SA-SAC20220412000231

PATIENT
  Age: 76 Year
  Sex: Female
  Weight: 63 kg

DRUGS (15)
  1. DEXAMETHASONE [Suspect]
     Active Substance: DEXAMETHASONE
     Indication: Plasma cell myeloma
     Route: 065
  2. POMALIDOMIDE [Suspect]
     Active Substance: POMALIDOMIDE
     Indication: Plasma cell myeloma
     Route: 065
  3. ISATUXIMAB [Suspect]
     Active Substance: ISATUXIMAB
     Indication: Plasma cell myeloma
     Dosage: 630 MG, QOW
     Route: 065
     Dates: start: 20220228
  4. ISATUXIMAB [Suspect]
     Active Substance: ISATUXIMAB
     Dosage: 630 MG, QW
     Route: 065
     Dates: start: 20220124, end: 20220227
  5. ISATUXIMAB [Suspect]
     Active Substance: ISATUXIMAB
     Dosage: 630 MG, BIW
     Route: 065
     Dates: start: 20220404, end: 20220405
  6. CARFILZOMIB [Suspect]
     Active Substance: CARFILZOMIB
     Indication: Plasma cell myeloma
     Dosage: 35 MG, QW
     Route: 065
     Dates: start: 20220124, end: 20220227
  7. CARFILZOMIB [Suspect]
     Active Substance: CARFILZOMIB
     Dosage: 35 UNK
     Route: 065
     Dates: start: 20220228
  8. CARFILZOMIB [Suspect]
     Active Substance: CARFILZOMIB
     Dosage: 99 MG, QW
     Route: 065
     Dates: start: 20220404
  9. DEXAMETHASONE [Suspect]
     Active Substance: DEXAMETHASONE
     Indication: Plasma cell myeloma
     Dosage: 20 MG, QW
     Route: 065
     Dates: start: 20220420, end: 20220421
  10. AMPHOTERICIN B [Concomitant]
     Active Substance: AMPHOTERICIN B
     Indication: Product used for unknown indication
     Dosage: UNK
     Dates: start: 2021
  11. POLYETHYLENE GLYCOL 4000 [Concomitant]
     Active Substance: POLYETHYLENE GLYCOL 4000
     Indication: Product used for unknown indication
     Dosage: UNK
     Dates: start: 2021
  12. ASPIRIN [Concomitant]
     Active Substance: ASPIRIN
     Indication: Hypertonia
     Dosage: UNK
     Dates: start: 2021
  13. PREGABALIN [Concomitant]
     Active Substance: PREGABALIN
     Indication: Product used for unknown indication
     Dosage: UNK
     Dates: start: 2021
  14. PASPERTIN (METOCLOPRAMIDE;POLIDOCANOL) [Concomitant]
     Indication: Product used for unknown indication
     Dosage: UNK
     Dates: start: 2021
  15. OCTAGAM IMMUNE GLOBULIN (HUMAN) [Concomitant]
     Active Substance: HUMAN IMMUNOGLOBULIN G
     Indication: Immunodeficiency

REACTIONS (6)
  - Pyrexia [Recovered/Resolved]
  - Secondary immunodeficiency [Recovered/Resolved with Sequelae]
  - Thrombocytopenia [Recovered/Resolved]
  - Polyneuropathy [Not Recovered/Not Resolved]
  - Anaemia [Recovered/Resolved]
  - Leukopenia [Recovered/Resolved]

NARRATIVE: CASE EVENT DATE: 20220221
